FAERS Safety Report 14829601 (Version 1)
Quarter: 2018Q2

REPORT INFORMATION
  Report Type: Spontaneous
  Country: HK (occurrence: HK)
  Receive Date: 20180430
  Receipt Date: 20180430
  Transmission Date: 20180711
  Serious: Yes (Other)
  Sender: FDA-Public Use
  Company Number: PHHY2018HK073409

PATIENT
  Age: 53 Year
  Sex: Female

DRUGS (1)
  1. REVOLADE [Suspect]
     Active Substance: ELTROMBOPAG
     Indication: APLASTIC ANAEMIA
     Dosage: 50 MG, QD
     Route: 065

REACTIONS (4)
  - Hepatitis C [Unknown]
  - Dyspepsia [Unknown]
  - Skin hyperpigmentation [Unknown]
  - Transaminases increased [Unknown]
